FAERS Safety Report 14016612 (Version 4)
Quarter: 2018Q1

REPORT INFORMATION
  Report Type: Spontaneous
  Country: US (occurrence: US)
  Receive Date: 20170927
  Receipt Date: 20180320
  Transmission Date: 20180508
  Serious: Yes (Other)
  Sender: FDA-Public Use
  Company Number: US-BAYER-2017-184710

PATIENT
  Age: 29 Year
  Sex: Female
  Weight: 107.5 kg

DRUGS (9)
  1. ZOLOFT [Concomitant]
     Active Substance: SERTRALINE HYDROCHLORIDE
     Dosage: 50 MG, QD
     Route: 048
     Dates: start: 20170315
  2. VITAMIN D3 [Concomitant]
     Active Substance: CHOLECALCIFEROL
     Dosage: UNK UNK, QD
     Route: 048
     Dates: start: 20160516
  3. MIRENA [Suspect]
     Active Substance: LEVONORGESTREL
     Indication: CONTRACEPTION
     Dosage: 20 MCG/24HR, CONT
     Route: 015
     Dates: start: 20170719, end: 20170925
  4. MIRENA [Suspect]
     Active Substance: LEVONORGESTREL
     Indication: CONTRACEPTION
     Dosage: 20 MCG/24HR, CONT
     Route: 015
     Dates: start: 20170315, end: 20170719
  5. MOTRIN [Concomitant]
     Active Substance: IBUPROFEN
  6. MIRENA [Suspect]
     Active Substance: LEVONORGESTREL
     Indication: CONTRACEPTION
  7. CYTOTEC [Concomitant]
     Active Substance: MISOPROSTOL
  8. LEVAQUIN [Concomitant]
     Active Substance: LEVOFLOXACIN
  9. PRENATAL [Concomitant]
     Active Substance: VITAMINS

REACTIONS (6)
  - Abdominal pain lower [None]
  - Nausea [Recovered/Resolved]
  - Embedded device [Recovered/Resolved]
  - Pelvic pain [Recovered/Resolved]
  - Genital haemorrhage [Recovered/Resolved]
  - Genital haemorrhage [None]

NARRATIVE: CASE EVENT DATE: 20170315
